FAERS Safety Report 18736406 (Version 2)
Quarter: 2021Q2

REPORT INFORMATION
  Report Type: Spontaneous
  Country: US (occurrence: US)
  Receive Date: 20210113
  Receipt Date: 20210426
  Transmission Date: 20210717
  Serious: No
  Sender: FDA-Public Use
  Company Number: US-BAYER-2021-020717

PATIENT
  Age: 76 Year

DRUGS (1)
  1. MIRALAX [Suspect]
     Active Substance: POLYETHYLENE GLYCOL 3350
     Indication: CONSTIPATION
     Dosage: UNK
     Dates: start: 20200924, end: 2020

REACTIONS (3)
  - Product prescribing error [Unknown]
  - Flatulence [Not Recovered/Not Resolved]
  - Incorrect dose administered [Unknown]
